FAERS Safety Report 5228245-1 (Version None)
Quarter: 2007Q1

REPORT INFORMATION
  Report Type: 
  Country: None (occurrence: None)
  Receive Date: 20070205
  Receipt Date: 20070201
  Transmission Date: 20070707
  Serious: Yes (Hospitalization, Other)
  Sender: FDA-Public Use
  Company Number: US-ELI_LILLY_AND_COMPANY-US200702000176

PATIENT
  Age: 48 Year
  Sex: Male
  Weight: 96.145 kg

DRUGS (3)
  1. ZYPREXA [Suspect]
     Dosage: 10 MG, 2/D
     Dates: start: 19971008
  2. PAROXETINE HCL [Concomitant]
     Dates: start: 20050101
  3. HYDROCHLOROTHIAZIDE [Concomitant]
     Dates: start: 20061001

REACTIONS (4)
  - DIABETES MELLITUS [None]
  - HEPATITIS VIRAL [None]
  - METABOLIC DISORDER [None]
  - VISION BLURRED [None]
